FAERS Safety Report 9134727 (Version 1)
Quarter: 2013Q1

REPORT INFORMATION
  Report Type: Spontaneous
  Country: US (occurrence: US)
  Receive Date: 20130304
  Receipt Date: 20130304
  Transmission Date: 20140127
  Serious: No
  Sender: FDA-Public Use
  Company Number: US-PFIZER INC-2013071601

PATIENT
  Age: 50 Year
  Sex: Male
  Weight: 134 kg

DRUGS (4)
  1. GENOTROPIN [Suspect]
     Indication: GROWTH HORMONE DEFICIENCY
     Dosage: 0.1 MG, 1X/DAY
     Dates: start: 201212
  2. EXFORGE HCT [Concomitant]
     Indication: HYPERTENSION
     Dosage: 10/320/25 MG,1 DF, 1X/DAY
     Route: 048
  3. HYDROCHLOROTHIAZIDE WITH TRIAMTERENE [Concomitant]
     Indication: HYPERTENSION
     Dosage: 37.5/25 MG,1 DF, 1X/DAY
     Route: 048
  4. FUROSEMIDE [Concomitant]
     Indication: HYPERTENSION
     Dosage: 20 MG, 1X/DAY
     Route: 048

REACTIONS (4)
  - Headache [Not Recovered/Not Resolved]
  - Throat tightness [Not Recovered/Not Resolved]
  - Chest discomfort [Not Recovered/Not Resolved]
  - Pain [Not Recovered/Not Resolved]
